FAERS Safety Report 8582606-1 (Version None)
Quarter: 2012Q3

REPORT INFORMATION
  Report Type: 
  Country: None (occurrence: None)
  Receive Date: 20120809
  Receipt Date: 20081223
  Transmission Date: 20120928
  Serious: Yes (Other)
  Sender: FDA-Public Use
  Company Number: US-ROCHE-1097670

PATIENT
  Sex: Female

DRUGS (5)
  1. FLUTICASONE PROPIONATE [Concomitant]
  2. SINGULAIR [Concomitant]
  3. ALBUTEROL [Concomitant]
  4. XOPENEX HFA [Concomitant]
  5. XOLAIR [Suspect]
     Indication: ASTHMA

REACTIONS (6)
  - COUGH [None]
  - GASTROENTERITIS VIRAL [None]
  - UNEVALUABLE EVENT [None]
  - BREATH SOUNDS ABNORMAL [None]
  - DYSPNOEA [None]
  - SINUS DISORDER [None]
